FAERS Safety Report 7490386-6 (Version None)
Quarter: 2011Q2

REPORT INFORMATION
  Report Type: 
  Country: None (occurrence: None)
  Receive Date: 20110519
  Receipt Date: 20110519
  Transmission Date: 20111010
  Serious: Yes (Hospitalization)
  Sender: FDA-Public Use
  Company Number: CH-ROXANE LABORATORIES, INC.-2011-DE-02554GD

PATIENT
  Sex: Male

DRUGS (4)
  1. TRAZODONE HCL [Suspect]
     Indication: DEPRESSION
     Dosage: DOSE TITRATION UP TO 300 MG
  2. BUPROPION HCL [Suspect]
     Indication: DEPRESSION
     Dosage: DOSE TITRATION UP TO 300 MG
  3. COMBINATION OF DOPA AND BENSERAZIDE [Concomitant]
     Indication: TREMOR
  4. LITHIUM CARBONATE [Suspect]
     Indication: DEPRESSION

REACTIONS (7)
  - ALTERED STATE OF CONSCIOUSNESS [None]
  - ATAXIA [None]
  - ENCEPHALOPATHY [None]
  - DRUG INTERACTION [None]
  - DELIRIUM [None]
  - THINKING ABNORMAL [None]
  - HALLUCINATION, VISUAL [None]
